FAERS Safety Report 9105101 (Version 6)
Quarter: 2019Q3

REPORT INFORMATION
  Report Type: Spontaneous
  Country: US (occurrence: US)
  Receive Date: 20130220
  Receipt Date: 20190917
  Transmission Date: 20191005
  Serious: Yes (Hospitalization, Other)
  Sender: FDA-Public Use
  Company Number: US-009507513-1302USA009102

PATIENT
  Sex: Female
  Weight: 86.17 kg

DRUGS (8)
  1. FOSAMAX [Suspect]
     Active Substance: ALENDRONATE SODIUM
     Indication: OSTEOPOROSIS
     Dosage: 10 MG, QW
     Route: 048
     Dates: start: 2001, end: 200805
  2. ALENDRONATE SODIUM. [Suspect]
     Active Substance: ALENDRONATE SODIUM
     Indication: OSTEOPOROSIS
  3. ASCORBIC ACID. [Concomitant]
     Active Substance: ASCORBIC ACID
     Dosage: 500 MG, BID
     Dates: start: 1990
  4. ALENDRONATE SODIUM. [Suspect]
     Active Substance: ALENDRONATE SODIUM
     Indication: OSTEOPENIA
     Dosage: 70 MG, QW
     Route: 048
     Dates: start: 200805, end: 200812
  5. VITAMINS (UNSPECIFIED) [Concomitant]
     Active Substance: VITAMINS
     Dosage: UNK, QD
     Dates: start: 2000
  6. FOSAMAX [Suspect]
     Active Substance: ALENDRONATE SODIUM
     Indication: OSTEOPENIA
     Dosage: 70 MG, QW
     Route: 048
     Dates: start: 2001, end: 200805
  7. VITAMIN D (UNSPECIFIED) [Concomitant]
     Active Substance: VITAMIN D NOS
     Dosage: UNK, QD
     Dates: start: 2000
  8. CALCIUM (UNSPECIFIED) (+) MAGNESIUM (UNSPECIFIED) (+) VITAMIN D (UNSPE [Concomitant]
     Dosage: 500 MG, BID
     Dates: start: 1990, end: 2010

REACTIONS (37)
  - Intramedullary rod insertion [Unknown]
  - Rheumatoid arthritis [Unknown]
  - Tibia fracture [Unknown]
  - Physical deconditioning [Unknown]
  - Fall [Unknown]
  - Barrett^s oesophagus [Unknown]
  - Fall [Unknown]
  - Osteoporosis [Unknown]
  - Myalgia [Unknown]
  - Patella fracture [Unknown]
  - Hypercholesterolaemia [Not Recovered/Not Resolved]
  - Hypothyroidism [Unknown]
  - Musculoskeletal discomfort [Unknown]
  - Patella fracture [Unknown]
  - Humerus fracture [Unknown]
  - Tooth extraction [Unknown]
  - Radius fracture [Unknown]
  - Arthralgia [Unknown]
  - Joint swelling [Unknown]
  - Femur fracture [Unknown]
  - Cardiac murmur [Unknown]
  - Ulna fracture [Unknown]
  - Inappropriate schedule of product administration [Unknown]
  - Fall [Unknown]
  - Ligament sprain [Unknown]
  - Dizziness [Unknown]
  - Fall [Unknown]
  - Foot fracture [Unknown]
  - Ankle fracture [Unknown]
  - Hyperparathyroidism primary [Unknown]
  - Balance disorder [Unknown]
  - Depression [Unknown]
  - Oophorectomy [Unknown]
  - Dyspnoea [Unknown]
  - Fibula fracture [Unknown]
  - Anaemia [Unknown]
  - Blood calcium increased [Unknown]

NARRATIVE: CASE EVENT DATE: 2001
